FAERS Safety Report 5644959-3 (Version None)
Quarter: 2008Q1

REPORT INFORMATION
  Report Type: 
  Country: None (occurrence: None)
  Receive Date: 20080229
  Receipt Date: 20071127
  Transmission Date: 20080703
  Serious: No
  Sender: FDA-Public Use
  Company Number: A0696045A

PATIENT
  Age: 93 Year
  Sex: Female
  Weight: 38.6 kg

DRUGS (2)
  1. VALTREX [Suspect]
     Indication: HERPES ZOSTER
     Dosage: 1G THREE TIMES PER DAY
     Route: 048
     Dates: start: 20071123
  2. UNKNOWN [Concomitant]

REACTIONS (1)
  - HYPOTENSION [None]
